FAERS Safety Report 4959089-3 (Version None)
Quarter: 2006Q1

REPORT INFORMATION
  Report Type: 
  Country: None (occurrence: None)
  Receive Date: 20060331
  Receipt Date: 20060317
  Transmission Date: 20060701
  Serious: Yes (Other)
  Sender: FDA-Public Use
  Company Number: PHEH2006US03723

PATIENT
  Age: 66 Year
  Sex: Female

DRUGS (2)
  1. ZOMETA [Suspect]
     Dosage: UNK, QMO
     Route: 042
     Dates: start: 20020601, end: 20050801
  2. FEMARA [Concomitant]

REACTIONS (7)
  - BONE FRAGMENTATION [None]
  - BONE OPERATION [None]
  - DYSGEUSIA [None]
  - INFECTION [None]
  - OSTEONECROSIS [None]
  - POST PROCEDURAL DISCHARGE [None]
  - TOOTH EXTRACTION [None]
